APPROVED DRUG PRODUCT: ACTIVELLA
Active Ingredient: ESTRADIOL; NORETHINDRONE ACETATE
Strength: 1MG;0.5MG
Dosage Form/Route: TABLET;ORAL
Application: N020907 | Product #001 | TE Code: AB
Applicant: AMNEAL PHARMACEUTICALS LLC
Approved: Nov 18, 1998 | RLD: Yes | RS: Yes | Type: RX